FAERS Safety Report 9597480 (Version 1)
Quarter: 2013Q4

REPORT INFORMATION
  Report Type: Spontaneous
  Country: US (occurrence: US)
  Receive Date: 20131004
  Receipt Date: 20131004
  Transmission Date: 20140711
  Serious: No
  Sender: FDA-Public Use
  Company Number: US-AMGEN-USASP2013019440

PATIENT
  Age: 30 Year
  Sex: Female
  Weight: 116.1 kg

DRUGS (5)
  1. ENBREL [Suspect]
     Indication: PRODUCT USED FOR UNKNOWN INDICATION
     Dosage: 50 MG, QWK
     Route: 058
  2. NABUMETONE [Concomitant]
     Dosage: 500 MG, UNK
  3. FLUOXETINE [Concomitant]
     Dosage: 10 MG, UNK
  4. OCELLA [Concomitant]
     Dosage: 3-0.03 MG, UNK
  5. AMITIZA [Concomitant]
     Dosage: 8 MUG, UNK

REACTIONS (1)
  - Influenza [Recovered/Resolved]
